FAERS Safety Report 23547859 (Version 3)
Quarter: 2025Q1

REPORT INFORMATION
  Report Type: Report from Study
  Country: DE (occurrence: DE)
  Receive Date: 20240221
  Receipt Date: 20250110
  Transmission Date: 20250408
  Serious: Yes (Hospitalization)
  Sender: ROCHE
  Company Number: DE-ROCHE-3414126

PATIENT
  Age: 56 Year
  Sex: Female
  Weight: 70.0 kg

DRUGS (7)
  1. PERJETA [Suspect]
     Active Substance: PERTUZUMAB
     Indication: Breast cancer
     Route: 065
     Dates: start: 20230823, end: 20231121
  2. TRASTUZUMAB [Suspect]
     Active Substance: TRASTUZUMAB
     Indication: Breast cancer
     Route: 065
     Dates: start: 20230823, end: 20231121
  3. CARBOPLATIN [Suspect]
     Active Substance: CARBOPLATIN
     Indication: Breast cancer
     Route: 065
     Dates: start: 20230804, end: 20231121
  4. PACLITAXEL [Suspect]
     Active Substance: PACLITAXEL
     Indication: Breast cancer
     Route: 065
     Dates: start: 20230804, end: 20231205
  5. VAGISAN (GERMANY) [Concomitant]
     Dates: start: 202309, end: 202312
  6. ALDIAMED [Concomitant]
     Route: 048
     Dates: start: 202309
  7. LOPERAMIDE [Concomitant]
     Active Substance: LOPERAMIDE
     Route: 048
     Dates: start: 202311, end: 202407

REACTIONS (4)
  - Vertigo [Recovered/Resolved]
  - Diarrhoea [Recovered/Resolved]
  - Fatigue [Recovered/Resolved]
  - Nausea [Recovered/Resolved]

NARRATIVE: CASE EVENT DATE: 20230913
